FAERS Safety Report 7220698-2 (Version None)
Quarter: 2011Q1

REPORT INFORMATION
  Report Type: 
  Country: None (occurrence: None)
  Receive Date: 20110111
  Receipt Date: 20110105
  Transmission Date: 20110831
  Serious: Yes (Hospitalization, Other)
  Sender: FDA-Public Use
  Company Number: US-ELI_LILLY_AND_COMPANY-US201101001766

PATIENT
  Age: 46 Year
  Sex: Male

DRUGS (1)
  1. BYETTA [Suspect]

REACTIONS (10)
  - SURGERY [None]
  - VIRAL INFECTION [None]
  - VOMITING [None]
  - VENTRICULAR EXTRASYSTOLES [None]
  - SLEEP APNOEA SYNDROME [None]
  - TOXICITY TO VARIOUS AGENTS [None]
  - WEIGHT DECREASED [None]
  - SYNCOPE [None]
  - VENTRICULAR TACHYCARDIA [None]
  - UPPER RESPIRATORY TRACT INFECTION [None]
